FAERS Safety Report 24906846 (Version 2)
Quarter: 2025Q1

REPORT INFORMATION
  Report Type: Spontaneous
  Country: US (occurrence: US)
  Receive Date: 20250130
  Receipt Date: 20250222
  Transmission Date: 20250408
  Serious: No
  Sender: SANOFI AVENTIS
  Company Number: US-SANOFI-02386906

PATIENT
  Age: 62 Year
  Sex: Female

DRUGS (1)
  1. NEXVIAZYME [Suspect]
     Active Substance: AVALGLUCOSIDASE ALFA-NGPT
     Route: 065
     Dates: start: 2023

REACTIONS (3)
  - Back pain [Unknown]
  - Complement factor C3 [Unknown]
  - Tryptase increased [Unknown]

NARRATIVE: CASE EVENT DATE: 20250129
